FAERS Safety Report 7131085-X (Version None)
Quarter: 2010Q4

REPORT INFORMATION
  Report Type: 
  Country: None (occurrence: None)
  Receive Date: 20101201
  Receipt Date: 20101122
  Transmission Date: 20110411
  Serious: Yes (Life-Threatening)
  Sender: FDA-Public Use
  Company Number: US-GENZYME-RENA-1000933

PATIENT
  Sex: Female

DRUGS (3)
  1. RENVELA [Suspect]
     Indication: HYPERPHOSPHATAEMIA
     Dosage: 1.6 G, TID
     Route: 048
     Dates: start: 20100630, end: 20100920
  2. RENVELA [Suspect]
     Dosage: UNK
     Route: 048
     Dates: start: 20100920
  3. RENAGEL [Suspect]
     Indication: HYPERPHOSPHATAEMIA
     Dosage: UNK
     Route: 048
     Dates: end: 20100630

REACTIONS (3)
  - ABDOMINAL NEOPLASM [None]
  - HYPERPHOSPHATAEMIA [None]
  - MEDICATION RESIDUE [None]
